FAERS Safety Report 7775813-9 (Version None)
Quarter: 2011Q3

REPORT INFORMATION
  Report Type: 
  Country: None (occurrence: None)
  Receive Date: 20110923
  Receipt Date: 20110912
  Transmission Date: 20111222
  Serious: Yes (Other)
  Sender: FDA-Public Use
  Company Number: PHHY2011BR82505

PATIENT
  Sex: Male
  Weight: 44.5 kg

DRUGS (6)
  1. GLEEVEC [Suspect]
     Dosage: 300 MG, DAILY
     Route: 048
     Dates: start: 20110519, end: 20110526
  2. GLEEVEC [Suspect]
     Indication: CHRONIC MYELOID LEUKAEMIA
     Dosage: 400 MG,DAILY
     Route: 048
     Dates: start: 20100618, end: 20100729
  3. GLEEVEC [Suspect]
     Dosage: 400 MG, DAILY
     Route: 048
     Dates: start: 20100923, end: 20101104
  4. HYDROXYUREA [Concomitant]
     Dosage: 1.5 G, UNK
  5. DASATINIB [Concomitant]
     Dosage: UNK UKN, UNK
  6. PREDNISOLONE [Concomitant]
     Dosage: 40 MG, UNK
     Dates: start: 20110519

REACTIONS (7)
  - FATIGUE [None]
  - SKIN LESION [None]
  - RASH ERYTHEMATOUS [None]
  - OEDEMA MUCOSAL [None]
  - TONGUE OEDEMA [None]
  - CYANOSIS [None]
  - EPISTAXIS [None]
